FAERS Safety Report 8162749-7 (Version None)
Quarter: 2012Q1

REPORT INFORMATION
  Report Type: 
  Country: None (occurrence: None)
  Receive Date: 20120103
  Receipt Date: 20111005
  Transmission Date: 20120608
  Serious: No
  Sender: FDA-Public Use
  Company Number: AE-2011-002082

PATIENT
  Age: 57 Year
  Sex: Male

DRUGS (3)
  1. INCIVEK [Suspect]
     Dosage: 1125 MG (375 MG, 3 IN 1 D), ORAL
     Route: 048
     Dates: start: 20111003
  2. RIBAVIRIN [Concomitant]
  3. PEGASYS [Concomitant]

REACTIONS (3)
  - HEADACHE [None]
  - ANAL PRURITUS [None]
  - NAUSEA [None]
